FAERS Safety Report 24869094 (Version 1)
Quarter: 2025Q1

REPORT INFORMATION
  Report Type: Spontaneous
  Country: EG (occurrence: EG)
  Receive Date: 20250121
  Receipt Date: 20250121
  Transmission Date: 20250409
  Serious: Yes (Hospitalization)
  Sender: BIOCON
  Company Number: EG-EGYPT REGULATORY AGENCY (CAPA)-BBL2024009568

PATIENT

DRUGS (6)
  1. HULIO [Suspect]
     Active Substance: ADALIMUMAB-FKJP
     Indication: Behcet^s syndrome
     Route: 058
  2. HULIO [Suspect]
     Active Substance: ADALIMUMAB-FKJP
     Indication: Uveitis
     Dosage: 40 MG, Q2W
     Route: 058
     Dates: start: 20250105
  3. HULIO [Suspect]
     Active Substance: ADALIMUMAB-FKJP
  4. FOLIC ACID [Concomitant]
     Active Substance: FOLIC ACID
     Indication: Product used for unknown indication
     Route: 065
  5. EPICOPRED [Concomitant]
     Indication: Product used for unknown indication
     Route: 065
  6. IMUTREXATE [Concomitant]
     Indication: Product used for unknown indication
     Route: 065

REACTIONS (5)
  - Abdominal distension [Recovering/Resolving]
  - Abscess [Recovering/Resolving]
  - Application site pustules [Recovering/Resolving]
  - Hyperhidrosis [Recovering/Resolving]
  - Off label use [Unknown]

NARRATIVE: CASE EVENT DATE: 20241223
